FAERS Safety Report 20812540 (Version 7)
Quarter: 2022Q3

REPORT INFORMATION
  Report Type: Spontaneous
  Country: GB (occurrence: GB)
  Receive Date: 20220511
  Receipt Date: 20220715
  Transmission Date: 20221027
  Serious: Yes (Hospitalization, Other)
  Sender: FDA-Public Use
  Company Number: GB-TAKEDA-2021TUS007784

PATIENT
  Sex: Male

DRUGS (47)
  1. REVLIMID [Suspect]
     Active Substance: LENALIDOMIDE
     Indication: Plasma cell myeloma
     Dosage: 10 MG
     Route: 065
  2. REVLIMID [Suspect]
     Active Substance: LENALIDOMIDE
     Dosage: FREQUENCY TEXT: NOT PROVIDED?15 MILLIGRAM
     Route: 048
     Dates: start: 20200812
  3. REVLIMID [Suspect]
     Active Substance: LENALIDOMIDE
     Dosage: 5 MG, QD
     Route: 048
  4. REVLIMID [Suspect]
     Active Substance: LENALIDOMIDE
     Route: 048
  5. REVLIMID [Suspect]
     Active Substance: LENALIDOMIDE
     Dosage: FREQUENCY UNKNOWN
     Route: 048
  6. REVLIMID [Suspect]
     Active Substance: LENALIDOMIDE
     Dosage: 10 MG
     Route: 065
  7. REVLIMID [Suspect]
     Active Substance: LENALIDOMIDE
     Dosage: 10 MG
     Route: 065
  8. REVLIMID [Suspect]
     Active Substance: LENALIDOMIDE
     Dosage: 5 MG, QD
     Route: 065
  9. REVLIMID [Suspect]
     Active Substance: LENALIDOMIDE
     Dosage: 5 MG, QD
     Route: 065
  10. REVLIMID [Suspect]
     Active Substance: LENALIDOMIDE
     Dosage: 10 MG
     Route: 065
  11. REVLIMID [Suspect]
     Active Substance: LENALIDOMIDE
     Dosage: 5 MG, QD
     Route: 065
  12. REVLIMID [Suspect]
     Active Substance: LENALIDOMIDE
     Dosage: 10 MG
     Route: 065
  13. REVLIMID [Suspect]
     Active Substance: LENALIDOMIDE
     Dosage: 5 MG, QD
     Route: 065
  14. DEXAMETHASONE [Suspect]
     Active Substance: DEXAMETHASONE
     Indication: Plasma cell myeloma
     Route: 065
     Dates: start: 20200812
  15. DEXAMETHASONE [Suspect]
     Active Substance: DEXAMETHASONE
     Indication: Product used for unknown indication
     Dosage: 10 MG, 1X A WEEK
     Route: 065
  16. CLODRONATE DISODIUM [Suspect]
     Active Substance: CLODRONATE DISODIUM
     Indication: Product used for unknown indication
     Dosage: 1600 MG, QD
     Route: 065
  17. CLODRONATE DISODIUM [Suspect]
     Active Substance: CLODRONATE DISODIUM
     Indication: Product used for unknown indication
     Dosage: 1600 MILLIGRAM, QD
     Route: 065
  18. CLODRONATE DISODIUM [Suspect]
     Active Substance: CLODRONATE DISODIUM
     Indication: Product used for unknown indication
     Dosage: 800 MG, QD
     Route: 065
  19. CLODRONATE DISODIUM [Suspect]
     Active Substance: CLODRONATE DISODIUM
     Dosage: 800 MG, QD
     Route: 065
  20. CLODRONATE DISODIUM [Suspect]
     Active Substance: CLODRONATE DISODIUM
     Dosage: 1600 MG, QD (800 MG, BID)
     Route: 065
  21. CLODRONATE DISODIUM [Suspect]
     Active Substance: CLODRONATE DISODIUM
     Dosage: 1600 MG, QD
     Route: 065
  22. CLODRONATE DISODIUM [Suspect]
     Active Substance: CLODRONATE DISODIUM
     Dosage: 800 MG, QD
     Route: 065
  23. CLODRONATE DISODIUM [Suspect]
     Active Substance: CLODRONATE DISODIUM
     Dosage: 1600 MG, QD (800 MG, BID)
     Route: 065
  24. CLODRONATE DISODIUM [Suspect]
     Active Substance: CLODRONATE DISODIUM
     Dosage: 1600 MG, QD
     Route: 065
  25. COTRIMOXAZOLE [Suspect]
     Active Substance: SULFAMETHOXAZOLE\TRIMETHOPRIM
     Indication: Product used for unknown indication
     Dosage: 480 MG, QD
     Route: 065
  26. COTRIMOXAZOLE [Suspect]
     Active Substance: SULFAMETHOXAZOLE\TRIMETHOPRIM
     Route: 065
  27. COTRIMOXAZOLE [Suspect]
     Active Substance: SULFAMETHOXAZOLE\TRIMETHOPRIM
     Dosage: 480 MG, QD
     Route: 065
  28. COTRIMOXAZOLE [Suspect]
     Active Substance: SULFAMETHOXAZOLE\TRIMETHOPRIM
     Dosage: 480 MILLIGRAM, QD
     Route: 065
  29. COTRIMOXAZOLE [Suspect]
     Active Substance: SULFAMETHOXAZOLE\TRIMETHOPRIM
     Dosage: 480 MILLIGRAM, QD
     Route: 065
  30. COTRIMOXAZOLE [Suspect]
     Active Substance: SULFAMETHOXAZOLE\TRIMETHOPRIM
     Dosage: 480 MG, QD
     Route: 065
  31. NINLARO [Suspect]
     Active Substance: IXAZOMIB CITRATE
     Indication: Product used for unknown indication
     Dosage: 2.3 MG, 1X A WEEK
     Route: 065
  32. NINLARO [Suspect]
     Active Substance: IXAZOMIB CITRATE
     Route: 065
  33. NINLARO [Suspect]
     Active Substance: IXAZOMIB CITRATE
     Dosage: 2.3 MG, 1X A WEEK
     Route: 065
  34. NINLARO [Suspect]
     Active Substance: IXAZOMIB CITRATE
     Dosage: 2.3 MG, QW
     Route: 065
  35. NINLARO [Suspect]
     Active Substance: IXAZOMIB CITRATE
     Dosage: 2.3 MG, 1X A WEEK
     Route: 065
  36. NINLARO [Suspect]
     Active Substance: IXAZOMIB CITRATE
     Dosage: UNK
     Route: 065
  37. NINLARO [Suspect]
     Active Substance: IXAZOMIB CITRATE
     Dosage: DOSE RE-INTRODUCED
     Route: 065
  38. NINLARO [Suspect]
     Active Substance: IXAZOMIB CITRATE
     Dosage: UNK
     Route: 065
  39. NINLARO [Suspect]
     Active Substance: IXAZOMIB CITRATE
     Dosage: 2.3 MG, 1X A WEEK
     Route: 065
  40. NINLARO [Suspect]
     Active Substance: IXAZOMIB CITRATE
     Dosage: DOSE RE-INTRODUCED
     Route: 065
  41. CALCIUM CARBONATE\CHOLECALCIFEROL [Suspect]
     Active Substance: CALCIUM CARBONATE\CHOLECALCIFEROL
     Indication: Product used for unknown indication
     Dosage: UNK, QD;
     Route: 065
  42. ACYCLOVIR [Suspect]
     Active Substance: ACYCLOVIR
     Indication: Product used for unknown indication
     Dosage: 200 MILLIGRAM, QD
     Route: 048
  43. ACYCLOVIR [Suspect]
     Active Substance: ACYCLOVIR
     Dosage: 200 MILLIGRAM, QD
     Route: 048
  44. LANSOPRAZOLE [Suspect]
     Active Substance: LANSOPRAZOLE
     Indication: Product used for unknown indication
     Dosage: 30 MILLIGRAM, QD
     Route: 065
  45. ONDANSETRON [Suspect]
     Active Substance: ONDANSETRON
     Indication: Product used for unknown indication
     Dosage: 4 MILLIGRAM, BID
     Route: 065
  46. ONDANSETRON [Suspect]
     Active Substance: ONDANSETRON
     Route: 065
  47. CLODRONIC ACID [Suspect]
     Active Substance: CLODRONIC ACID
     Indication: Product used for unknown indication
     Route: 065

REACTIONS (11)
  - Fluid retention [Unknown]
  - Cellulitis [Unknown]
  - Product prescribing issue [Unknown]
  - Neutropenia [Not Recovered/Not Resolved]
  - Plasma cell myeloma recurrent [Unknown]
  - Joint swelling [Recovering/Resolving]
  - Peripheral swelling [Recovering/Resolving]
  - Constipation [Unknown]
  - Diarrhoea [Unknown]
  - Platelet count decreased [Unknown]
  - Paraproteinaemia [Unknown]

NARRATIVE: CASE EVENT DATE: 20201203
